FAERS Safety Report 14765692 (Version 3)
Quarter: 2022Q4

REPORT INFORMATION
  Report Type: Spontaneous
  Country: PL (occurrence: PL)
  Receive Date: 20180416
  Receipt Date: 20221121
  Transmission Date: 20230113
  Serious: Yes (Life-Threatening, Hospitalization, Other)
  Sender: FDA-Public Use
  Company Number: PL-BRISTOL-MYERS SQUIBB COMPANY-BMS-2018-012770

PATIENT
  Age: 4 Year
  Sex: Male

DRUGS (1)
  1. IBUPROFEN [Suspect]
     Active Substance: IBUPROFEN
     Indication: Pharyngitis
     Dosage: UNK
     Route: 065

REACTIONS (16)
  - Anaphylactic reaction [Unknown]
  - Lip swelling [Unknown]
  - Palmar erythema [Unknown]
  - Pharyngeal erythema [Unknown]
  - Penile oedema [Unknown]
  - Blood glucose increased [Unknown]
  - Pyrexia [Unknown]
  - Blister [Unknown]
  - Urticaria [Unknown]
  - Face oedema [Unknown]
  - Dyspnoea [Unknown]
  - Oedema peripheral [Unknown]
  - Generalised oedema [Unknown]
  - Pruritus [Unknown]
  - Contraindicated product administered [Unknown]
  - Product use issue [Recovered/Resolved]

NARRATIVE: CASE EVENT DATE: 20161201
